FAERS Safety Report 15023241 (Version 1)
Quarter: 2018Q2

REPORT INFORMATION
  Report Type: Report from Study
  Country: CO (occurrence: CO)
  Receive Date: 20180618
  Receipt Date: 20180618
  Transmission Date: 20180711
  Serious: Yes (Hospitalization)
  Sender: FDA-Public Use
  Company Number: CO-SEATTLE GENETICS-2018SGN01385

PATIENT
  Age: 34 Year
  Sex: Male
  Weight: 76 kg

DRUGS (1)
  1. BRENTUXIMAB VEDOTIN-MPI [Suspect]
     Active Substance: BRENTUXIMAB VEDOTIN
     Indication: HODGKIN^S DISEASE
     Dosage: 135 MG, UNK
     Route: 042
     Dates: start: 20180528

REACTIONS (1)
  - Electrolyte depletion [Unknown]

NARRATIVE: CASE EVENT DATE: 201805
